FAERS Safety Report 7157601 (Version 5)
Quarter: 2014Q1

REPORT INFORMATION
  Report Type: Report from Study
  Country: DE (occurrence: DE)
  Receive Date: 20091026
  Receipt Date: 20140117
  Transmission Date: 20141002
  Serious: Yes (Hospitalization)
  Sender: FDA-Public Use
  Company Number: DE-JNJFOC-20090803861

PATIENT
  Age: 40 Year
  Sex: Female
  Weight: 139 kg

DRUGS (11)
  1. STELARA [Suspect]
     Indication: PSORIASIS
     Route: 058
     Dates: start: 20090306, end: 20090306
  2. STELARA [Suspect]
     Indication: PSORIASIS
     Route: 058
     Dates: start: 20090527, end: 20090527
  3. STELARA [Suspect]
     Indication: PSORIASIS
     Route: 058
     Dates: start: 20090206, end: 20090206
  4. APROVEL [Concomitant]
     Indication: HYPERTENSION
     Route: 048
     Dates: start: 2007
  5. IBUPROFEN [Concomitant]
     Indication: PAIN OF SKIN
     Route: 048
  6. NOVALGIN [Concomitant]
     Indication: PAIN OF SKIN
     Route: 048
  7. TRAMAL [Concomitant]
     Indication: PAIN OF SKIN
     Route: 048
  8. YASMIN [Concomitant]
     Indication: CONTRACEPTION
     Route: 048
     Dates: start: 2002
  9. OMEP [Concomitant]
     Indication: GASTROINTESTINAL DISORDER THERAPY
     Route: 048
     Dates: start: 2008
  10. MTX [Concomitant]
     Route: 058
     Dates: start: 20090708
  11. FOLIC ACID [Concomitant]
     Route: 048
     Dates: start: 20090709

REACTIONS (2)
  - Pneumonia [Recovered/Resolved]
  - Pustular psoriasis [Not Recovered/Not Resolved]
